FAERS Safety Report 7341945-2 (Version None)
Quarter: 2011Q1

REPORT INFORMATION
  Report Type: 
  Country: None (occurrence: None)
  Receive Date: 20110309
  Receipt Date: 20110307
  Transmission Date: 20110831
  Serious: No
  Sender: FDA-Public Use
  Company Number: US-TEVA-269309USA

PATIENT
  Sex: Female
  Weight: 93.07 kg

DRUGS (1)
  1. PLAN B ONE-STEP [Suspect]
     Indication: POST COITAL CONTRACEPTION
     Route: 048
     Dates: start: 20110211, end: 20110211

REACTIONS (4)
  - FATIGUE [None]
  - CONSTIPATION [None]
  - GASTRIC ULCER [None]
  - MENORRHAGIA [None]
